FAERS Safety Report 5764491-6 (Version None)
Quarter: 2008Q2

REPORT INFORMATION
  Report Type: 
  Country: None (occurrence: None)
  Receive Date: 20080610
  Receipt Date: 20080529
  Transmission Date: 20081010
  Serious: Yes (Other)
  Sender: FDA-Public Use
  Company Number: US-PFIZER INC-2008046446

PATIENT
  Sex: Female

DRUGS (2)
  1. DEPO-PROVERA SUSPENSION/INJ [Suspect]
     Indication: CONTRACEPTION
     Route: 030
     Dates: start: 19970101, end: 19970101
  2. DEPO-PROVERA SUSPENSION/INJ [Suspect]
     Route: 030
     Dates: start: 20020101, end: 20020101

REACTIONS (6)
  - MOOD ALTERED [None]
  - MULTIPLE FRACTURES [None]
  - OSTEOPOROSIS [None]
  - SUICIDAL IDEATION [None]
  - TOOTH DISORDER [None]
  - WISDOM TEETH REMOVAL [None]
